FAERS Safety Report 12745943 (Version 1)
Quarter: 2016Q3

REPORT INFORMATION
  Report Type: Spontaneous
  Country: HU (occurrence: HU)
  Receive Date: 20160915
  Receipt Date: 20160915
  Transmission Date: 20161109
  Serious: Yes (Life-Threatening)
  Sender: FDA-Public Use
  Company Number: HU-009507513-1609HUN006301

PATIENT
  Age: 26 Year
  Sex: Female

DRUGS (3)
  1. LETROX [Concomitant]
     Active Substance: LEVOTHYROXINE SODIUM
     Indication: AUTOIMMUNE HYPOTHYROIDISM
  2. NUVARING [Suspect]
     Active Substance: ETHINYL ESTRADIOL\ETONOGESTREL
     Indication: MENSTRUATION IRREGULAR
     Dosage: 0.120 MG ETONOGESTREL + 0.015 MG ETHINYLOESTRADIOLE RELEASED IN 24 HRS
     Route: 067
     Dates: start: 20150216, end: 20150223
  3. NUVARING [Suspect]
     Active Substance: ETHINYL ESTRADIOL\ETONOGESTREL
     Indication: OVULATION PAIN
     Dosage: 0.120 MG ETONOGESTREL + 0.015 MG ETHINYLOESTRADIOLE RELEASED IN 24 HRS
     Route: 067
     Dates: start: 20150216, end: 20150223

REACTIONS (4)
  - Tachycardia [Recovering/Resolving]
  - Angina pectoris [Recovered/Resolved]
  - Chest discomfort [Recovered/Resolved]
  - Hypertension [Recovering/Resolving]

NARRATIVE: CASE EVENT DATE: 20150220
